FAERS Safety Report 6825479-7 (Version None)
Quarter: 2010Q3

REPORT INFORMATION
  Report Type: 
  Country: None (occurrence: None)
  Receive Date: 20100708
  Receipt Date: 20070307
  Transmission Date: 20110219
  Serious: No
  Sender: FDA-Public Use
  Company Number: US-PFIZER INC-2007000908

PATIENT
  Sex: Female
  Weight: 67.59 kg

DRUGS (1)
  1. CHANTIX [Suspect]
     Indication: SMOKING CESSATION THERAPY
     Dates: start: 20060101

REACTIONS (12)
  - ABDOMINAL DISCOMFORT [None]
  - DYSGEUSIA [None]
  - EMOTIONAL DISORDER [None]
  - FEELING ABNORMAL [None]
  - HYPERHIDROSIS [None]
  - INFLUENZA [None]
  - INTENTIONAL DRUG MISUSE [None]
  - IRRITABILITY [None]
  - MALAISE [None]
  - PREMENSTRUAL SYNDROME [None]
  - TOBACCO USER [None]
  - TREATMENT NONCOMPLIANCE [None]
